FAERS Safety Report 6359320-6 (Version None)
Quarter: 2009Q3

REPORT INFORMATION
  Report Type: 
  Country: None (occurrence: None)
  Receive Date: 20090914
  Receipt Date: 20090907
  Transmission Date: 20100115
  Serious: Yes (Hospitalization)
  Sender: FDA-Public Use
  Company Number: DE-GDP-09406587

PATIENT
  Sex: Female

DRUGS (2)
  1. ORAYCEA (DOXYCYCLINE) 40 MG [Suspect]
     Indication: ROSACEA
     Dosage: (40 MG QD ORAL)
     Route: 048
     Dates: start: 20090101
  2. LISIGAMMA [Concomitant]

REACTIONS (1)
  - TACHYCARDIA [None]
